FAERS Safety Report 5536800-4 (Version None)
Quarter: 2007Q4

REPORT INFORMATION
  Report Type: 
  Country: None (occurrence: None)
  Receive Date: 20071204
  Receipt Date: 20071119
  Transmission Date: 20080405
  Serious: Yes (Hospitalization)
  Sender: FDA-Public Use
  Company Number: 2007BM000183

PATIENT
  Age: 61 Year
  Sex: Female

DRUGS (2)
  1. PREDNISONE [Suspect]
     Indication: WEGENER'S GRANULOMATOSIS
     Dosage: 60 MG, QD; IV
     Route: 042
  2. ORAPRED [Suspect]
     Indication: WEGENER'S GRANULOMATOSIS
     Dosage: SEE IMAGE

REACTIONS (22)
  - ABDOMINAL ABSCESS [None]
  - ABDOMINAL HERNIA [None]
  - AGITATION [None]
  - ASCITES [None]
  - BACTERIA BODY FLUID IDENTIFIED [None]
  - COMPUTERISED TOMOGRAM THORAX ABNORMAL [None]
  - CONDITION AGGRAVATED [None]
  - CYTOMEGALOVIRUS GASTROINTESTINAL INFECTION [None]
  - DEPRESSION [None]
  - FUNGAL INFECTION [None]
  - GASTROINTESTINAL HAEMORRHAGE [None]
  - HAEMOGLOBIN DECREASED [None]
  - INFECTION IN AN IMMUNOCOMPROMISED HOST [None]
  - INFLAMMATION [None]
  - INTESTINAL ULCER [None]
  - LOWER RESPIRATORY TRACT INFECTION BACTERIAL [None]
  - LUNG NEOPLASM MALIGNANT [None]
  - PSEUDOMONAS INFECTION [None]
  - PULMONARY MYCOSIS [None]
  - PULMONARY TUBERCULOSIS [None]
  - SHOCK [None]
  - THROMBOTIC THROMBOCYTOPENIC PURPURA [None]
